FAERS Safety Report 11441764 (Version 1)
Quarter: 2015Q3

REPORT INFORMATION
  Report Type: Spontaneous
  Country: BR (occurrence: BR)
  Receive Date: 20150901
  Receipt Date: 20150901
  Transmission Date: 20151125
  Serious: Yes (Other)
  Sender: FDA-Public Use
  Company Number: BR-PFIZER INC-2015285038

PATIENT
  Age: 67 Year
  Sex: Female
  Weight: 53 kg

DRUGS (5)
  1. XALATAN [Suspect]
     Active Substance: LATANOPROST
     Indication: INTRAOCULAR PRESSURE INCREASED
     Dosage: ONE DROP IN EACH EYE, 1X/DAY (AT NIGHT)
     Route: 047
     Dates: start: 2010, end: 2012
  2. CITALOR [Concomitant]
     Active Substance: ATORVASTATIN
     Dosage: UNK
  3. XALATAN [Suspect]
     Active Substance: LATANOPROST
     Dosage: UNK
     Dates: end: 2015
  4. CITALOR [Concomitant]
     Active Substance: ATORVASTATIN
     Indication: BLOOD CHOLESTEROL
     Dosage: 1 DF, DAILY
     Dates: start: 2012
  5. LIPITOR [Concomitant]
     Active Substance: ATORVASTATIN CALCIUM
     Indication: BLOOD CHOLESTEROL
     Dosage: 10 MG, DAILY
     Route: 048
     Dates: start: 2006

REACTIONS (2)
  - Eye disorder [Unknown]
  - Intraocular pressure increased [Unknown]

NARRATIVE: CASE EVENT DATE: 2015
